FAERS Safety Report 7131282-3 (Version None)
Quarter: 2010Q4

REPORT INFORMATION
  Report Type: 
  Country: None (occurrence: None)
  Receive Date: 20101124
  Receipt Date: 20101124
  Transmission Date: 20110411
  Serious: Yes (Other)
  Sender: FDA-Public Use
  Company Number: None

PATIENT
  Age: 33 Year
  Sex: Female

DRUGS (1)
  1. BREVITAL SODIUM [Suspect]
     Indication: INDUCTION OF ANAESTHESIA
     Dosage: 200 3 TIMES/WEEK IV BOLUS
     Route: 040
     Dates: start: 20101119, end: 20101119

REACTIONS (2)
  - DRUG INEFFECTIVE [None]
  - PRODUCT QUALITY ISSUE [None]
